FAERS Safety Report 9204313 (Version 1)
Quarter: 2013Q1

REPORT INFORMATION
  Report Type: Spontaneous
  Country: US (occurrence: None)
  Receive Date: 20120709
  Receipt Date: 20120709
  Transmission Date: 20140127
  Serious: No
  Sender: FDA-Public Use
  Company Number: 2012HGS-003397

PATIENT
  Age: 50 Year
  Sex: Female
  Weight: 51.71 kg

DRUGS (6)
  1. BENLYSTA [Suspect]
     Dosage: 1 IN 28 D
     Route: 041
     Dates: start: 20110923
  2. CELEBREX (CELECOXIB) (CELECOXIB) [Concomitant]
  3. PLAQUENIL (HYDROCHLORQUINE) (HYDROCHLOROQUINE) [Concomitant]
  4. VITAMIN D (LEKOVIT CA) (COLECALCIFEROL, CALCIUM CARBONATE) [Concomitant]
  5. TYLENOL (DOZOL) (PARACETMOL, DIPHENYDRAMINE) [Concomitant]
  6. CALCIUM (CALCIUM) (CALCIUM) [Concomitant]

REACTIONS (1)
  - Weight decreased [None]
